FAERS Safety Report 15492933 (Version 1)
Quarter: 2018Q4

REPORT INFORMATION
  Report Type: Spontaneous
  Country: US (occurrence: US)
  Receive Date: 20181012
  Receipt Date: 20181012
  Transmission Date: 20190205
  Serious: Yes (Other)
  Sender: FDA-Public Use
  Company Number: US-THE MENTHOLATUM COMPANY-2055958

PATIENT
  Sex: Female

DRUGS (1)
  1. RED CROSS TOOTHACHE [Suspect]
     Active Substance: EUGENOL
     Indication: GINGIVAL PAIN
     Route: 004
     Dates: start: 20180923, end: 20180923

REACTIONS (1)
  - Chemical burn [Unknown]

NARRATIVE: CASE EVENT DATE: 20180923
